FAERS Safety Report 12076435 (Version 1)
Quarter: 2016Q1

REPORT INFORMATION
  Report Type: Spontaneous
  Country: US (occurrence: US)
  Receive Date: 20160215
  Receipt Date: 20160215
  Transmission Date: 20160526
  Serious: Yes (Hospitalization)
  Sender: FDA-Public Use
  Company Number: PHEH2016US003330

PATIENT
  Sex: Male
  Weight: 111.1 kg

DRUGS (3)
  1. CARBAMAZEPINE. [Suspect]
     Active Substance: CARBAMAZEPINE
     Indication: EPILEPSY
     Dosage: 1400 MG, QD
     Route: 048
  2. TEGRETOL [Suspect]
     Active Substance: CARBAMAZEPINE
     Indication: EPILEPSY
     Dosage: 2 DF, BID
     Route: 048
  3. BENICAR [Concomitant]
     Active Substance: OLMESARTAN MEDOXOMIL
     Indication: HYPERTENSION
     Dosage: 20 MG, QD
     Route: 048

REACTIONS (9)
  - Anticonvulsant drug level decreased [Recovered/Resolved]
  - Generalised tonic-clonic seizure [Recovering/Resolving]
  - General physical health deterioration [Unknown]
  - Facial pain [Recovering/Resolving]
  - Hypoaesthesia [Unknown]
  - Pain in extremity [Recovering/Resolving]
  - Pain [Recovering/Resolving]
  - Cervical cord compression [Unknown]
  - Somnolence [Unknown]
